FAERS Safety Report 14480362 (Version 1)
Quarter: 2018Q1

REPORT INFORMATION
  Report Type: Spontaneous
  Country: US (occurrence: US)
  Receive Date: 20180201
  Receipt Date: 20180201
  Transmission Date: 20180509
  Serious: Yes (Disabling)
  Sender: FDA-Public Use
  Company Number: None

PATIENT
  Age: 74 Year
  Sex: Female
  Weight: 47.25 kg

DRUGS (1)
  1. OPALESCENCE TOOTH WHITENING SYSTEM 40 % [Suspect]
     Active Substance: HYDROGEN PEROXIDE
     Indication: DENTAL COSMETIC PROCEDURE
     Dosage: ?          OTHER ROUTE:ON TEETH?
     Route: 004

REACTIONS (1)
  - Mouth ulceration [None]

NARRATIVE: CASE EVENT DATE: 20180131
